FAERS Safety Report 9107963 (Version 1)
Quarter: 2013Q1

REPORT INFORMATION
  Report Type: Spontaneous
  Country: BR (occurrence: BR)
  Receive Date: 20130221
  Receipt Date: 20130221
  Transmission Date: 20140127
  Serious: Yes (Death)
  Sender: FDA-Public Use
  Company Number: BR-PFIZER INC-2013064707

PATIENT
  Age: 86 Year
  Sex: Male

DRUGS (1)
  1. EFEXOR XR [Suspect]
     Dosage: UNK
     Route: 048

REACTIONS (1)
  - Aortic aneurysm [Fatal]
